FAERS Safety Report 4286395-0 (Version None)
Quarter: 2004Q1

REPORT INFORMATION
  Report Type: 
  Country: None (occurrence: None)
  Receive Date: 20040126
  Receipt Date: 20030926
  Transmission Date: 20041129
  Serious: Yes (Hospitalization)
  Sender: FDA-Public Use
  Company Number: USA030948392

PATIENT
  Age: 80 Year
  Sex: Female

DRUGS (4)
  1. FORTEO [Suspect]
     Indication: OSTEOPOROSIS
     Dates: start: 20030501
  2. ASPIRIN [Concomitant]
  3. SYNTHROID [Concomitant]
  4. ACIPHEX [Concomitant]

REACTIONS (3)
  - DIZZINESS [None]
  - EXCORIATION [None]
  - FALL [None]
